FAERS Safety Report 7376011-3 (Version None)
Quarter: 2011Q1

REPORT INFORMATION
  Report Type: 
  Country: None (occurrence: None)
  Receive Date: 20110325
  Receipt Date: 20110311
  Transmission Date: 20110831
  Serious: Yes (Other)
  Sender: FDA-Public Use
  Company Number: CA-JNJFOC-20110306769

PATIENT
  Sex: Female
  Weight: 84 kg

DRUGS (1)
  1. REMICADE [Suspect]
     Indication: PSORIASIS
     Dosage: 4TH INFUSION
     Route: 042

REACTIONS (4)
  - INFUSION RELATED REACTION [None]
  - SUPRAPUBIC PAIN [None]
  - OXYGEN SATURATION DECREASED [None]
  - ABDOMINAL PAIN [None]
